FAERS Safety Report 6938699-8 (Version None)
Quarter: 2010Q3

REPORT INFORMATION
  Report Type: 
  Country: None (occurrence: None)
  Receive Date: 20100824
  Receipt Date: 20100811
  Transmission Date: 20110219
  Serious: Yes (Other)
  Sender: FDA-Public Use
  Company Number: PHHY2010US46553

PATIENT
  Sex: Female

DRUGS (4)
  1. DIOVAN [Suspect]
  2. CALCIUM [Concomitant]
  3. MULTI-VITAMINS [Concomitant]
  4. VITAMIN D3 [Concomitant]

REACTIONS (3)
  - BLOOD PRESSURE INCREASED [None]
  - SURGERY [None]
  - TREATMENT NONCOMPLIANCE [None]
